FAERS Safety Report 5602481-4 (Version None)
Quarter: 2008Q1

REPORT INFORMATION
  Report Type: 
  Country: None (occurrence: None)
  Receive Date: 20080125
  Receipt Date: 20080115
  Transmission Date: 20080703
  Serious: Yes (Hospitalization, Other)
  Sender: FDA-Public Use
  Company Number: US-ASTRAZENECA-2006UW07712

PATIENT
  Age: 38 Year
  Sex: Female
  Weight: 86.4 kg

DRUGS (24)
  1. SEROQUEL [Suspect]
     Indication: BIPOLAR DISORDER
     Route: 048
     Dates: start: 20030701, end: 20070901
  2. SEROQUEL [Suspect]
     Indication: DEPRESSION
     Route: 048
     Dates: start: 20030701, end: 20070901
  3. SEROQUEL [Suspect]
     Indication: POST-TRAUMATIC STRESS DISORDER
     Route: 048
     Dates: start: 20030701, end: 20070901
  4. ABILIFY [Concomitant]
     Dates: start: 20060101
  5. TRAZODONE HCL [Concomitant]
  6. GEODON [Concomitant]
     Dates: start: 20060101
  7. DILAUDID [Concomitant]
     Route: 048
  8. EFFEXOR [Concomitant]
     Route: 048
  9. TRAMADOL HCL [Concomitant]
     Route: 048
  10. MAXALT [Concomitant]
     Route: 048
  11. DULCOLAX [Concomitant]
     Dosage: 2 TABS
     Route: 048
  12. PROMETHAZINE [Concomitant]
     Route: 048
  13. KLONAZAPAM [Concomitant]
     Route: 048
  14. DEPAKOTE [Concomitant]
     Route: 048
  15. PRILOSEC [Concomitant]
     Route: 048
  16. CRESTOR [Concomitant]
     Route: 048
  17. ZOLOFT [Concomitant]
  18. RANITIDINE [Concomitant]
  19. CYCLOBENZAPRINE HCL [Concomitant]
  20. DIPHENHYDRAMINE HCL [Concomitant]
  21. PREDNISONE TAB [Concomitant]
  22. DIFLUCAN [Concomitant]
  23. CIPRO [Concomitant]
  24. ADVAIR DISKUS 100/50 [Concomitant]
     Dosage: 250/50 DISKUS

REACTIONS (6)
  - BLOOD CHOLESTEROL INCREASED [None]
  - DIABETES MELLITUS [None]
  - GALLBLADDER OPERATION [None]
  - HOSPITALISATION [None]
  - HYPERTENSION [None]
  - MULTIPLE SCLEROSIS [None]
